FAERS Safety Report 9335324 (Version 1)
Quarter: 2013Q2

REPORT INFORMATION
  Report Type: Spontaneous
  Country: DE (occurrence: DE)
  Receive Date: 20130606
  Receipt Date: 20130606
  Transmission Date: 20140414
  Serious: Yes (Hospitalization, Other)
  Sender: FDA-Public Use
  Company Number: DE-ELI_LILLY_AND_COMPANY-DE201305008723

PATIENT
  Sex: Female

DRUGS (6)
  1. FORSTEO [Suspect]
     Indication: OSTEOPOROSIS
     Dosage: UNK, QD
     Route: 058
     Dates: start: 20111111
  2. PREDNISOLON [Concomitant]
     Dosage: 7.5 MG, UNKNOWN
  3. PREDNISOLON [Concomitant]
     Dosage: 10 MG, UNKNOWN
  4. METHOTREXATE [Concomitant]
     Dosage: UNK, WEEKLY (1/W)
  5. IBU [Concomitant]
  6. NOVAMINSULFON [Concomitant]
     Dosage: UNK, QD

REACTIONS (2)
  - Thrombosis [Recovered/Resolved]
  - Coagulopathy [Not Recovered/Not Resolved]
